FAERS Safety Report 8830869 (Version 1)
Quarter: 2012Q4

REPORT INFORMATION
  Report Type: 
  Country: US (occurrence: US)
  Receive Date: 20121009
  Receipt Date: 20121009
  Transmission Date: 20130627
  Serious: Yes (Hospitalization)
  Sender: FDA-Public Use
  Company Number: US-RANBAXY-2012US-60708

PATIENT
  Age: 59 Year
  Sex: Female

DRUGS (4)
  1. LORAZEPAM [Suspect]
     Indication: ANXIETY
     Dosage: 1 mg, prn
     Route: 065
  2. LORAZEPAM [Suspect]
     Indication: DEPRESSION
  3. LORAZEPAM [Suspect]
     Indication: ANXIETY
     Dosage: 2 mg/day at bed time
     Route: 065
  4. LORAZEPAM [Suspect]
     Indication: DEPRESSION

REACTIONS (1)
  - Catatonia [Recovered/Resolved]
